FAERS Safety Report 5958186-3 (Version None)
Quarter: 2008Q4

REPORT INFORMATION
  Report Type: 
  Country: None (occurrence: None)
  Receive Date: 20081117
  Receipt Date: 20081104
  Transmission Date: 20090506
  Serious: Yes (Other)
  Sender: FDA-Public Use
  Company Number: 2008SP021890

PATIENT
  Age: 9 Year
  Sex: Female
  Weight: 30 kg

DRUGS (2)
  1. CLARITIN [Suspect]
     Indication: NASOPHARYNGITIS
     Dosage: 10 MG;PO
     Route: 047
     Dates: start: 20080910, end: 20080912
  2. ACTIFED [Suspect]
     Indication: NASOPHARYNGITIS
     Dosage: 6 MG;BID;PO
     Route: 048
     Dates: start: 20080910, end: 20080912

REACTIONS (3)
  - BALANCE DISORDER [None]
  - DIZZINESS [None]
  - VISUAL IMPAIRMENT [None]
